FAERS Safety Report 13133248 (Version 1)
Quarter: 2017Q1

REPORT INFORMATION
  Report Type: Spontaneous
  Country: US (occurrence: US)
  Receive Date: 20170120
  Receipt Date: 20170120
  Transmission Date: 20170428
  Serious: Yes (Life-Threatening, Hospitalization, Other)
  Sender: FDA-Public Use
  Company Number: US-ASTELLAS-2017US002415

PATIENT
  Age: 84 Year
  Sex: Male

DRUGS (1)
  1. TARCEVA [Suspect]
     Active Substance: ERLOTINIB HYDROCHLORIDE
     Indication: METASTASES TO BONE MARROW
     Route: 048
     Dates: start: 20150521

REACTIONS (4)
  - Hip fracture [Recovered/Resolved]
  - Rash [Recovered/Resolved]
  - Seizure [Recovering/Resolving]
  - Carotid endarterectomy [Unknown]

NARRATIVE: CASE EVENT DATE: 201607
